FAERS Safety Report 10221740 (Version 2)
Quarter: 2014Q2

REPORT INFORMATION
  Report Type: Report from Study
  Country: US (occurrence: US)
  Receive Date: 20140606
  Receipt Date: 20140613
  Transmission Date: 20141212
  Serious: Yes (Hospitalization)
  Sender: FDA-Public Use
  Company Number: US-GLAXOSMITHKLINE-A1075997A

PATIENT
  Age: 69 Year
  Sex: Male
  Weight: 88.5 kg

DRUGS (14)
  1. OFATUMUMAB [Suspect]
     Indication: CHRONIC LYMPHOCYTIC LEUKAEMIA
     Dosage: 1000MG MONTHLY
     Route: 042
     Dates: start: 20130514
  2. ALEMTUZUMAB [Suspect]
     Indication: CHRONIC LYMPHOCYTIC LEUKAEMIA
     Route: 058
     Dates: start: 20130909
  3. ALBUTEROL [Concomitant]
  4. AMBIEN [Concomitant]
  5. ASPIRIN [Concomitant]
  6. BACTRIM DS [Concomitant]
  7. FINASTERIDE [Concomitant]
  8. GLIPIZIDE [Concomitant]
  9. DIPHENHYDRAMINE HYDROCHLORIDE + LIDOCAINE HYDROCHLORIDE + MAALOX [Concomitant]
  10. LORAZEPAM [Concomitant]
  11. PROBIOTICS [Concomitant]
  12. TERAZOSIN [Concomitant]
  13. VALGANCICLOVIR HYDROCHLORIDE [Concomitant]
  14. ZOLOFT [Concomitant]

REACTIONS (1)
  - Gallbladder disorder [Unknown]
